FAERS Safety Report 24284514 (Version 1)
Quarter: 2024Q3

REPORT INFORMATION
  Report Type: Other
  Country: ES (occurrence: ES)
  Receive Date: 20240905
  Receipt Date: 20240905
  Transmission Date: 20241016
  Serious: Yes (Hospitalization)
  Sender: ZYDUS PHARM
  Company Number: None

PATIENT

DRUGS (2)
  1. PREGABALIN [Suspect]
     Active Substance: PREGABALIN
     Indication: Fracture pain
     Dosage: 175 MILLIGRAM, QD
     Route: 048
     Dates: start: 20240612, end: 20240614
  2. METHADONE HYDROCHLORIDE [Suspect]
     Active Substance: METHADONE HYDROCHLORIDE
     Indication: Fracture pain
     Dosage: 2.5 MILLIGRAM, BID
     Route: 048
     Dates: start: 20240612, end: 20240614

REACTIONS (3)
  - Pneumonia aspiration [Recovered/Resolved]
  - Hypoxia [Recovered/Resolved]
  - Somnolence [Recovered/Resolved]

NARRATIVE: CASE EVENT DATE: 20240614
